FAERS Safety Report 9776360 (Version 2)
Quarter: 2014Q1

REPORT INFORMATION
  Report Type: Report from Study
  Country: US (occurrence: US)
  Receive Date: 20131220
  Receipt Date: 20140124
  Transmission Date: 20141002
  Serious: Yes (Hospitalization)
  Sender: FDA-Public Use
  Company Number: US-PFIZER INC-2013354055

PATIENT
  Age: 60 Year
  Sex: Female
  Weight: 86.2 kg

DRUGS (17)
  1. TOFACITINIB CITRATE [Suspect]
     Indication: RHEUMATOID ARTHRITIS
     Dosage: 5MG TABLET ONCE DAILY
     Route: 048
     Dates: start: 20080115, end: 20131113
  2. LIPITOR [Concomitant]
     Indication: HYPERCHOLESTEROLAEMIA
     Dosage: 20 MG, 1X/DAY
     Route: 048
     Dates: start: 20100313
  3. TIAZAC [Concomitant]
     Indication: HYPERTENSION
     Dosage: 120 MG, 1X/DAY
     Route: 048
  4. LASIX [Concomitant]
     Indication: HYPERTENSION
     Dosage: 20 MEQ, 1X/DAY
     Route: 048
  5. K-DUR [Concomitant]
     Indication: HYPOKALAEMIA
     Dosage: 20 MEQ (CR) ONCE DAILY
     Route: 048
  6. KLOR-CON M20 [Concomitant]
     Indication: HYPOKALAEMIA
     Dosage: 20 MEQ (CR) ONCE DAILY
     Route: 048
  7. DIOVAN [Concomitant]
     Indication: HYPERTENSION
     Dosage: 160 MG, 1X/DAY
     Route: 048
     Dates: start: 200703
  8. EFFEXOR-XR [Concomitant]
     Indication: DEPRESSION
     Dosage: 150 MG, 1X/DAY
     Route: 048
     Dates: start: 200902
  9. LODINE [Concomitant]
     Indication: ARTHRALGIA
     Dosage: 500 MG, 1X/DAY
     Route: 048
     Dates: start: 20100528
  10. FOLIC ACID [Concomitant]
     Indication: RHEUMATOID ARTHRITIS
     Dosage: 2 MG, 1X/DAY
     Route: 048
     Dates: start: 20070109
  11. VICODIN [Concomitant]
     Dosage: 5 MG/500 MG
  12. MIRALAX [Concomitant]
     Dosage: PACK
  13. ZOFRAN ODT [Concomitant]
     Dosage: 4 MG, UNK
  14. ADVAIR DISKUS [Concomitant]
     Dosage: 100/50 MCG/DOSE
  15. XOPENEX HFA [Concomitant]
     Dosage: 45 MCG/ ACT AEROSOL
  16. PROTONIX [Concomitant]
     Dosage: 40 MG, EC
  17. ALLEGRA [Concomitant]
     Indication: HYPERSENSITIVITY
     Dosage: 180 MG, 1X/DAY
     Route: 048

REACTIONS (1)
  - Colitis ulcerative [Recovered/Resolved]
